FAERS Safety Report 21223717 (Version 1)
Quarter: 2022Q3

REPORT INFORMATION
  Report Type: Spontaneous
  Country: BR (occurrence: BR)
  Receive Date: 20220817
  Receipt Date: 20220817
  Transmission Date: 20221027
  Serious: Yes (Other)
  Sender: FDA-Public Use
  Company Number: BR-SA-SAC20220623001758

PATIENT

DRUGS (1)
  1. LARONIDASE [Suspect]
     Active Substance: LARONIDASE
     Indication: Mucopolysaccharidosis I
     Dosage: 9 DF (VIALS), QW
     Route: 042
     Dates: start: 20070101

REACTIONS (6)
  - Procedural haemorrhage [Recovering/Resolving]
  - Foot deformity [Recovered/Resolved]
  - Somnolence [Recovered/Resolved]
  - Asthenia [Recovered/Resolved]
  - Hyperkeratosis [Recovered/Resolved]
  - Eye colour change [Recovering/Resolving]

NARRATIVE: CASE EVENT DATE: 20220601
